FAERS Safety Report 16905743 (Version 1)
Quarter: 2019Q4

REPORT INFORMATION
  Report Type: Report from Study
  Country: DE (occurrence: DE)
  Receive Date: 20191010
  Receipt Date: 20191010
  Transmission Date: 20200122
  Serious: Yes (Hospitalization, Other)
  Sender: FDA-Public Use
  Company Number: DE-BRISTOL-MYERS SQUIBB COMPANY-BMS-2019-095527

PATIENT
  Sex: Male
  Weight: 80 kg

DRUGS (9)
  1. VALSACOR [Concomitant]
     Active Substance: VALSARTAN
     Indication: HYPERTENSION
     Dosage: 80 MILLIGRAM, QD
     Route: 048
     Dates: start: 20170516
  2. PAZOPANIB [Suspect]
     Active Substance: PAZOPANIB
     Indication: METASTATIC RENAL CELL CARCINOMA
     Dosage: 800 MG, QD
     Route: 048
     Dates: start: 20170508, end: 20170711
  3. VALSACOR [Concomitant]
     Active Substance: VALSARTAN
     Indication: PRODUCT USED FOR UNKNOWN INDICATION
     Dosage: 40 MILLIGRAM, QD
     Route: 048
     Dates: start: 20161015, end: 20170515
  4. AMLODIPIN-RATIOPHARM [Concomitant]
     Active Substance: AMLODIPINE MALEATE
     Indication: HYPERTENSION
     Dosage: 5 MILLIGRAM, QD
     Route: 048
     Dates: start: 20170731
  5. NIVOLUMAB [Suspect]
     Active Substance: NIVOLUMAB
     Indication: METASTATIC RENAL CELL CARCINOMA
     Dosage: 3 MILLIGRAM/KILOGRAM
     Route: 042
     Dates: start: 20170717, end: 20180708
  6. NIVOLUMAB [Suspect]
     Active Substance: NIVOLUMAB
     Indication: PRODUCT USED FOR UNKNOWN INDICATION
     Dosage: 480 MILLIGRAM
     Route: 042
     Dates: start: 20180709
  7. GANFORT [Concomitant]
     Active Substance: BIMATOPROST\TIMOLOL
     Indication: GLAUCOMA
     Dosage: 5 MILLIGRAM, QD
     Route: 065
     Dates: start: 20020715
  8. CODEINUM PHOSPHORICUM FORTE COMPREN [Concomitant]
     Indication: PROPHYLAXIS
     Dosage: 50 MILLIGRAM, QD
     Route: 048
     Dates: start: 20170731, end: 20170925
  9. RANITIC [Concomitant]
     Active Substance: RANITIDINE HYDROCHLORIDE
     Indication: PROPHYLAXIS
     Dosage: 150 MILLIGRAM, QD
     Route: 048
     Dates: start: 20170413, end: 20170504

REACTIONS (4)
  - Urinary tract infection bacterial [Recovered/Resolved]
  - Tumour pain [Recovered/Resolved]
  - Urinary tract infection [Recovered/Resolved]
  - Pyrexia [Recovered/Resolved]

NARRATIVE: CASE EVENT DATE: 20170522
